FAERS Safety Report 9415196 (Version 1)
Quarter: 2013Q3

REPORT INFORMATION
  Report Type: Spontaneous
  Country: US (occurrence: US)
  Receive Date: 20130723
  Receipt Date: 20130723
  Transmission Date: 20140515
  Serious: No
  Sender: FDA-Public Use
  Company Number: US-BAYER-2013-086475

PATIENT
  Age: 76 Year
  Sex: Female
  Weight: 47.17 kg

DRUGS (4)
  1. ALEVE CAPLET [Suspect]
     Indication: BACK PAIN
     Dosage: 2 DF, PRN
     Route: 048
     Dates: start: 201304
  2. BAYER GENUINE ASPIRIN ORIGINAL STRENGTH [Suspect]
  3. FENTANYL [Concomitant]
  4. OXYCODONE [Concomitant]

REACTIONS (3)
  - Contusion [None]
  - Increased tendency to bruise [None]
  - Abdominal discomfort [Recovered/Resolved]
